FAERS Safety Report 9944861 (Version 1)
Quarter: 2014Q1

REPORT INFORMATION
  Report Type: Report from Study
  Country: US (occurrence: US)
  Receive Date: 20140303
  Receipt Date: 20140303
  Transmission Date: 20141002
  Serious: No
  Sender: FDA-Public Use
  Company Number: US-ABBVIE-13P-163-1052274-00

PATIENT
  Age: 14 Year
  Sex: Female
  Weight: 99.88 kg

DRUGS (3)
  1. HUMIRA [Suspect]
     Indication: PSORIASIS
     Dates: start: 201212, end: 201212
  2. HUMIRA [Suspect]
  3. HYDROXYZINE [Concomitant]
     Indication: PRURITUS
     Dosage: AT BEDTIME

REACTIONS (2)
  - Off label use [Not Recovered/Not Resolved]
  - Device malfunction [Unknown]
